FAERS Safety Report 11327102 (Version 2)
Quarter: 2015Q4

REPORT INFORMATION
  Report Type: Spontaneous
  Country: CA (occurrence: CA)
  Receive Date: 20150731
  Receipt Date: 20151015
  Transmission Date: 20160304
  Serious: Yes (Hospitalization)
  Sender: FDA-Public Use
  Company Number: CA-SA-2015SA110747

PATIENT
  Age: 65 Year
  Sex: Female
  Weight: 68 kg

DRUGS (16)
  1. VINCRISTINE [Suspect]
     Active Substance: VINCRISTINE
     Route: 042
  2. DOXORUBICIN [Suspect]
     Active Substance: DOXORUBICIN
     Dosage: FORM: SOLUTION INTRAVENOUS
     Route: 042
  3. CYCLOPHOSPHAMIDE. [Suspect]
     Active Substance: CYCLOPHOSPHAMIDE
     Route: 042
  4. BENADRYL [Concomitant]
     Active Substance: DIPHENHYDRAMINE HYDROCHLORIDE
     Dosage: MOUTH RINSE
  5. RITUXAN [Suspect]
     Active Substance: RITUXIMAB
     Route: 042
  6. RITUXAN [Suspect]
     Active Substance: RITUXIMAB
     Route: 042
  7. RITUXAN [Suspect]
     Active Substance: RITUXIMAB
     Route: 042
  8. FISH OIL [Concomitant]
     Active Substance: FISH OIL
  9. PREDNISONE. [Suspect]
     Active Substance: PREDNISONE
     Route: 048
  10. ERGOCALCIFEROL. [Concomitant]
     Active Substance: ERGOCALCIFEROL
  11. PROCHLORPERAZINE. [Concomitant]
     Active Substance: PROCHLORPERAZINE
  12. DYCLONE [Concomitant]
     Active Substance: DYCLONINE HYDROCHLORIDE
     Dosage: MOUTH RINSE
  13. RITUXAN [Suspect]
     Active Substance: RITUXIMAB
     Dosage: FORM: SOLUTION INTRAVENOUS?FREQUENCY: ONCE IN 4 WEEKS
     Route: 042
  14. FLUDARABINE PHOSPHATE. [Suspect]
     Active Substance: FLUDARABINE PHOSPHATE
     Route: 065
  15. FILGRASTIM [Suspect]
     Active Substance: FILGRASTIM
     Route: 042
  16. NEULASTA [Suspect]
     Active Substance: PEGFILGRASTIM
     Dosage: FORM: SUBCUTANEOUS SOLUTION
     Route: 058

REACTIONS (22)
  - Muscle twitching [Unknown]
  - Asthenia [Unknown]
  - Disease progression [Unknown]
  - White blood cell count decreased [Unknown]
  - Arthralgia [Unknown]
  - Febrile neutropenia [Unknown]
  - Lymph node pain [Unknown]
  - Pyrexia [Unknown]
  - Thrombosis [Unknown]
  - Malaise [Unknown]
  - Platelet count decreased [Unknown]
  - Lymphadenopathy [Unknown]
  - Lymphadenitis [Unknown]
  - Clostridium difficile infection [Unknown]
  - Productive cough [Unknown]
  - Weight decreased [Unknown]
  - Hypotension [Unknown]
  - Nausea [Unknown]
  - Blood magnesium decreased [Unknown]
  - Fatigue [Unknown]
  - Heart rate abnormal [Unknown]
  - Infection [Unknown]
